FAERS Safety Report 9880839 (Version 1)
Quarter: 2014Q1

REPORT INFORMATION
  Report Type: Spontaneous
  Country: US (occurrence: US)
  Receive Date: 20140207
  Receipt Date: 20140207
  Transmission Date: 20141002
  Serious: Yes (Other)
  Sender: FDA-Public Use
  Company Number: US-PFIZER INC-2014033621

PATIENT
  Age: 54 Year
  Sex: Female

DRUGS (1)
  1. LYRICA [Suspect]
     Indication: DIABETIC NEUROPATHY
     Dosage: 50 MG, 3X/DAY
     Dates: start: 20140113

REACTIONS (3)
  - Oedema peripheral [Unknown]
  - Localised oedema [Unknown]
  - Weight increased [Unknown]
